FAERS Safety Report 8347544-8 (Version None)
Quarter: 2012Q2

REPORT INFORMATION
  Report Type: 
  Country: None (occurrence: None)
  Receive Date: 20120509
  Receipt Date: 20120501
  Transmission Date: 20120825
  Serious: Yes (Hospitalization)
  Sender: FDA-Public Use
  Company Number: US-ASTRAZENECA-2012SE02665

PATIENT
  Age: 60 Year
  Sex: Male

DRUGS (9)
  1. COREG [Concomitant]
     Dosage: 12.5 BID
  2. ASPIRIN [Concomitant]
  3. ATROVENT [Concomitant]
  4. CRESTOR [Suspect]
     Route: 048
  5. XANAX [Concomitant]
  6. ALBUTEROL [Concomitant]
  7. SYMBICORT [Suspect]
     Dosage: UNKNOWN DOSE AND FREQUENCY
     Route: 055
  8. LASIX [Concomitant]
  9. ZESTRIL [Concomitant]

REACTIONS (18)
  - DIASTOLIC DYSFUNCTION [None]
  - HYPERLIPIDAEMIA [None]
  - TREATMENT NONCOMPLIANCE [None]
  - HYPERTENSION [None]
  - TROPONIN INCREASED [None]
  - DYSPNOEA [None]
  - ANXIETY [None]
  - COUGH [None]
  - WHEEZING [None]
  - DYSPNOEA EXERTIONAL [None]
  - INTENTIONAL DRUG MISUSE [None]
  - CORONARY ARTERY DISEASE [None]
  - ACUTE MYOCARDIAL INFARCTION [None]
  - MALIGNANT MELANOMA [None]
  - BRONCHITIS [None]
  - CHRONIC OBSTRUCTIVE PULMONARY DISEASE [None]
  - RESPIRATORY FAILURE [None]
  - ACUTE CORONARY SYNDROME [None]
